FAERS Safety Report 24928812 (Version 2)
Quarter: 2025Q1

REPORT INFORMATION
  Report Type: Report from Study
  Country: JP (occurrence: JP)
  Receive Date: 20250205
  Receipt Date: 20250218
  Transmission Date: 20250409
  Serious: Yes (Other)
  Sender: UCB
  Company Number: JP-UCBJ-CD202501379UCBPHAPROD

PATIENT
  Age: 52 Year
  Sex: Male

DRUGS (4)
  1. ROZANOLIXIZUMAB [Suspect]
     Active Substance: ROZANOLIXIZUMAB
     Indication: Myasthenia gravis
     Route: 058
     Dates: start: 20240603
  2. PREDNISOLONE [Suspect]
     Active Substance: PREDNISOLONE
     Indication: Myasthenia gravis
     Route: 048
  3. PREDNISOLONE [Suspect]
     Active Substance: PREDNISOLONE
     Route: 048
  4. PREDNISOLONE [Suspect]
     Active Substance: PREDNISOLONE
     Route: 048

REACTIONS (3)
  - Myasthenia gravis [Not Recovered/Not Resolved]
  - Blood immunoglobulin G decreased [Unknown]
  - Off label use [Unknown]
